FAERS Safety Report 15585032 (Version 1)
Quarter: 2018Q4

REPORT INFORMATION
  Report Type: Report from Study
  Country: MX (occurrence: MX)
  Receive Date: 20181102
  Receipt Date: 20181102
  Transmission Date: 20190205
  Serious: Yes (Other)
  Sender: FDA-Public Use
  Company Number: MX-SHIRE-MX201842041

PATIENT

DRUGS (1)
  1. ELAPRASE [Suspect]
     Active Substance: IDURSULFASE
     Indication: MUCOPOLYSACCHARIDOSIS II
     Dosage: 4 VIALS, 6MG/3ML, 1X/WEEK
     Route: 042
     Dates: start: 20130623

REACTIONS (3)
  - Splenomegaly [Unknown]
  - Cardiomegaly [Unknown]
  - Vasodilatation [Unknown]
